FAERS Safety Report 11068601 (Version 1)
Quarter: 2015Q2

REPORT INFORMATION
  Report Type: Spontaneous
  Country: US (occurrence: None)
  Receive Date: 20150424
  Receipt Date: 20150424
  Transmission Date: 20150821
  Serious: Yes (Other)
  Sender: FDA-Public Use
  Company Number: None

PATIENT
  Age: 5 Year
  Sex: Male
  Weight: 22.68 kg

DRUGS (6)
  1. RITILAN, 10MG [Concomitant]
  2. MIRALAX [Concomitant]
     Active Substance: POLYETHYLENE GLYCOL 3350
  3. MIRTAZAPIN [Suspect]
     Active Substance: MIRTAZAPINE
     Indication: INSOMNIA
     Route: 048
     Dates: start: 20150409, end: 20150410
  4. PULMOCORT [Concomitant]
  5. FIBER ONE FRUIT GUMMIES [Concomitant]
  6. ALBUTEROL. [Concomitant]
     Active Substance: ALBUTEROL

REACTIONS (3)
  - Sleep terror [None]
  - Nightmare [None]
  - Screaming [None]

NARRATIVE: CASE EVENT DATE: 20150409
